FAERS Safety Report 19874712 (Version 3)
Quarter: 2024Q2

REPORT INFORMATION
  Report Type: Other
  Country: US (occurrence: None)
  Receive Date: 20210922
  Receipt Date: 20240509
  Transmission Date: 20240716
  Serious: Yes (Hospitalization)
  Sender: FDA-Public Use
  Company Number: US-ROCHE-2913724

PATIENT
  Age: 83 Year
  Sex: Male

DRUGS (14)
  1. ACTEMRA [Suspect]
     Active Substance: TOCILIZUMAB
     Indication: Giant cell arteritis
     Route: 058
  2. ACTEMRA [Suspect]
     Active Substance: TOCILIZUMAB
  3. ACTEMRA [Suspect]
     Active Substance: TOCILIZUMAB
     Indication: Polymyalgia rheumatica
  4. ACTEMRA [Suspect]
     Active Substance: TOCILIZUMAB
  5. ACTEMRA [Suspect]
     Active Substance: TOCILIZUMAB
     Indication: Giant cell arteritis
  6. ACTEMRA [Suspect]
     Active Substance: TOCILIZUMAB
  7. VITAMIN C [Concomitant]
     Active Substance: ASCORBIC ACID
     Dosage: 500 MG CAPSULE, SIG: 1 CAP(S) ORALLY ONCE A DAY, NOTES: OTC
  8. MAGNESIUM [Concomitant]
     Active Substance: MAGNESIUM
     Dosage: 250, SIG:, NOTES: OTC *PLEASE REVIEW AND PICK CORRECT STRENGTH-FORMULATION FROM MEDISPAN OPTIONS. IF
  9. CO Q 10 [UBIDECARENONE] [Concomitant]
     Dosage: 100 MG CAPSULE, SIG: 1 CAP(S) ORALLY ONCE A DAY, NOTES: OTC
  10. ASPIRIN [Concomitant]
     Active Substance: ASPIRIN
     Dosage: 81 MG TABLET DELAYED RELEASE, SIG: 1 TAB(S) ORALLY BID, NOTES: OTC
  11. POTASSIUM [Concomitant]
     Active Substance: POTASSIUM
     Dosage: 90MG, SIG: 1 QD, NOTES: OTC *PLEASE REVIEW AND PICK CORRECT STRENGTH-FORMULATION FROM MEDISPAN OPTIO
  12. LISINOPRIL [Concomitant]
     Active Substance: LISINOPRIL
     Dosage: 10 MG TABLET, SIG: 1 TAB(S) ORALLY ONCE A DAY, NOTES: POP
  13. OMEPRAZOLE [Concomitant]
     Active Substance: DONEPEZIL HYDROCHLORIDE\OMEPRAZOLE\OMEPRAZOLE MAGNESIUM
     Dosage: 20 MG CAPSULE DELAYED RELEASE, SIG: 1 CAP(S) ORALLY ONCE A DAY, NOTES: PCP
  14. SIMVASTATIN [Concomitant]
     Active Substance: SIMVASTATIN
     Dosage: 20 MG TABLET, SIG: 1 TAB(S) ORALLY M, W,F, NOTES: PCP

REACTIONS (1)
  - Blindness unilateral [Unknown]
